FAERS Safety Report 14878917 (Version 1)
Quarter: 2018Q2

REPORT INFORMATION
  Report Type: Spontaneous
  Country: US (occurrence: US)
  Receive Date: 20180511
  Receipt Date: 20180511
  Transmission Date: 20180711
  Serious: Yes (Other)
  Sender: FDA-Public Use
  Company Number: US-ROCHE-2117964

PATIENT
  Sex: Male

DRUGS (2)
  1. OCREVUS [Suspect]
     Active Substance: OCRELIZUMAB
     Indication: MULTIPLE SCLEROSIS
     Dosage: ONGOING: UNKNOWN
     Route: 065
  2. GAMUNEX-C [Concomitant]
     Active Substance: HUMAN IMMUNOGLOBULIN G
     Route: 042

REACTIONS (8)
  - Muscular weakness [Unknown]
  - Polyneuropathy [Unknown]
  - Myositis [Unknown]
  - Dropped head syndrome [Unknown]
  - Hypertension [Unknown]
  - Anxiety [Unknown]
  - Fatigue [Unknown]
  - Pain [Unknown]
